FAERS Safety Report 5569501-7 (Version None)
Quarter: 2007Q4

REPORT INFORMATION
  Report Type: 
  Country: None (occurrence: None)
  Receive Date: 20071220
  Receipt Date: 20071217
  Transmission Date: 20080405
  Serious: Yes (Hospitalization, Other)
  Sender: FDA-Public Use
  Company Number: DE-JNJFOC-20070107095

PATIENT
  Sex: Female

DRUGS (3)
  1. RISPERDAL CONSTA [Suspect]
     Indication: DELUSIONAL DISORDER, PERSECUTORY TYPE
     Dosage: APPROXIMATELY FIVE YEARS AGO
     Route: 030
  2. AKINETON [Concomitant]
     Indication: AKATHISIA
  3. EUTHYROX [Concomitant]
     Indication: HYPOTHYROIDISM
     Route: 048

REACTIONS (3)
  - AKATHISIA [None]
  - ANTIPSYCHOTIC DRUG LEVEL INCREASED [None]
  - LOWER LIMB DEFORMITY [None]
